FAERS Safety Report 19505280 (Version 2)
Quarter: 2021Q3

REPORT INFORMATION
  Report Type: Report from Study
  Country: AR (occurrence: AR)
  Receive Date: 20210708
  Receipt Date: 20210814
  Transmission Date: 20211014
  Serious: Yes (Death, Hospitalization)
  Sender: FDA-Public Use
  Company Number: AR-JNJFOC-20210712215

PATIENT
  Age: 78 Year
  Sex: Female

DRUGS (1)
  1. SIMPONI [Suspect]
     Active Substance: GOLIMUMAB
     Indication: RHEUMATOID ARTHRITIS
     Route: 058
     Dates: start: 20160426

REACTIONS (2)
  - Myocardial infarction [Fatal]
  - COVID-19 [Recovering/Resolving]

NARRATIVE: CASE EVENT DATE: 20210610
